FAERS Safety Report 9171457 (Version 1)
Quarter: 2013Q1

REPORT INFORMATION
  Report Type: Spontaneous
  Country: US (occurrence: None)
  Receive Date: 20130305
  Receipt Date: 20130305
  Transmission Date: 20140127
  Serious: Yes (Hospitalization)
  Sender: FDA-Public Use
  Company Number: 2013034880

PATIENT
  Sex: Male
  Weight: 98.43 kg

DRUGS (23)
  1. PRIVIGEN (IMMUNE GLOBULIN INTRAVENOUS (HUMAN) 10% LIQUID) [Suspect]
     Indication: LUNG TRANSPLANT
     Dosage: (1X/ 7 DAYS (NOT OTHERWISE SPECIFIED)
     Route: 042
  2. PREDNISONE (PREDNISONE) [Concomitant]
  3. AVAPRO (IRBESARTAN) [Concomitant]
  4. PRAVASTATIN (PRAVASTATIN) [Concomitant]
  5. SEROQUEL (QUETIAPINE FUMARATE) [Concomitant]
  6. WARFARIN SODIUM (WARFARIN SODIUM) [Concomitant]
  7. PROGRAF (TACROLIMUS) [Concomitant]
  8. VITAMIN C [Concomitant]
  9. IMURAN (AZATHIOPRINE) [Concomitant]
  10. VITAMINS [Concomitant]
  11. CYTOGAM (IMMUNOGLOBULIN CYTOMEGALOVIRUS) [Concomitant]
  12. VALCYTE (VALGANCICLOVIR HYDROCHLORIDE) (VALGANCICLOVIR HYDROCHLORIDE) [Concomitant]
  13. ASPIRIN (ACETYLSALICYLIC ACID) [Concomitant]
  14. LABETALOL (LABETALOL) [Concomitant]
  15. NEXIUM (ESOMEPRAZOLE MAGNESIUM) [Concomitant]
  16. BACTRIM (BACTRIM /00086101/) [Concomitant]
  17. TOBRAMYCIN (TOBRAMYCIN) [Concomitant]
  18. AMPHOTERICIN (AMPHOTERICIN B) [Concomitant]
  19. COLACE (DOCUSATE SODIUM) [Concomitant]
  20. CITRACAL (CALCIUM CITRATE) [Concomitant]
  21. DIPHENHYDRAMINE (DIPHENHYDRAMINE) [Concomitant]
  22. SODIUM CHLORIDE (SODIUM CHLORIDE) [Concomitant]
  23. EPI-PEN (EPINEPHRIN HYDROCHLORIDE) [Concomitant]

REACTIONS (1)
  - Investigation [None]
